FAERS Safety Report 14031580 (Version 1)
Quarter: 2017Q4

REPORT INFORMATION
  Report Type: Spontaneous
  Country: IT (occurrence: IT)
  Receive Date: 20171002
  Receipt Date: 20171002
  Transmission Date: 20180321
  Serious: Yes (Other)
  Sender: FDA-Public Use
  Company Number: IT-OTSUKA-2017_020809

PATIENT
  Age: 4 Year
  Sex: Male
  Weight: 16.7 kg

DRUGS (7)
  1. BUSULFAN. [Suspect]
     Active Substance: BUSULFAN
     Indication: STEM CELL TRANSPLANT
     Dosage: 5 MG/KG, QD (1/DAY)
     Route: 065
  2. CYCLOPHOSPHAMIDE. [Suspect]
     Active Substance: CYCLOPHOSPHAMIDE
     Indication: STEM CELL TRANSPLANT
     Dosage: 50 MG/KG, QD (1/DAY)
     Route: 065
  3. ANTITHYMOCYTE IMMUNOGLOBULIN [Suspect]
     Active Substance: THYMOCYTE IMMUNE GLOBULIN NOS
     Indication: STEM CELL TRANSPLANT
     Dosage: 2.5 MG/KG, QD (1/DAY)
     Route: 065
  4. MYCOPHENOLATE MOFETIL. [Suspect]
     Active Substance: MYCOPHENOLATE MOFETIL
     Indication: PRODUCT USED FOR UNKNOWN INDICATION
     Dosage: UNKNOWN
     Route: 065
  5. CYCLOSPORINE. [Suspect]
     Active Substance: CYCLOSPORINE
     Indication: PROPHYLAXIS AGAINST GRAFT VERSUS HOST DISEASE
     Dosage: 5 MG/KG, QD (1/DAY)
     Route: 065
  6. METHYLPREDISOLONE [Suspect]
     Active Substance: METHYLPREDNISOLONE
     Dosage: 10 MG/KG, QD (1/DAY)
     Route: 042
  7. METHYLPREDISOLONE [Suspect]
     Active Substance: METHYLPREDNISOLONE
     Indication: COOMBS POSITIVE HAEMOLYTIC ANAEMIA
     Dosage: 5 MG/KG, QD (1/DAY)
     Route: 042

REACTIONS (11)
  - Injury [Unknown]
  - Keratitis [Not Recovered/Not Resolved]
  - Coombs positive haemolytic anaemia [Recovered/Resolved]
  - Corneal scar [Not Recovered/Not Resolved]
  - Corneal leukoma [Not Recovered/Not Resolved]
  - Posterior reversible encephalopathy syndrome [Recovered/Resolved with Sequelae]
  - Thrombotic thrombocytopenic purpura [Recovered/Resolved with Sequelae]
  - Graft versus host disease [Recovered/Resolved]
  - Lymphoedema [Not Recovered/Not Resolved]
  - Blindness [Not Recovered/Not Resolved]
  - Oedema peripheral [Not Recovered/Not Resolved]
